FAERS Safety Report 5843646-6 (Version None)
Quarter: 2008Q3

REPORT INFORMATION
  Report Type: 
  Country: None (occurrence: None)
  Receive Date: 20080813
  Receipt Date: 20080730
  Transmission Date: 20090109
  Serious: Yes (Death)
  Sender: FDA-Public Use
  Company Number: DE-ABBOTT-08P-062-0437317-00

PATIENT
  Sex: Male
  Weight: 84 kg

DRUGS (7)
  1. HUMIRA [Suspect]
     Indication: RHEUMATOID ARTHRITIS
     Route: 058
     Dates: start: 20040513, end: 20080114
  2. ALENDRONATE SODIUM [Suspect]
     Indication: RHEUMATOID ARTHRITIS
  3. CELECOXIB [Suspect]
     Indication: RHEUMATOID ARTHRITIS
  4. METHOTREXATE [Concomitant]
     Indication: RHEUMATOID ARTHRITIS
     Dates: start: 20020201
  5. METHOTREXATE [Concomitant]
  6. METHOTREXATE [Concomitant]
  7. SULFASALAZINE [Concomitant]
     Indication: RHEUMATOID ARTHRITIS
     Dates: start: 20020201, end: 20030401

REACTIONS (1)
  - SUDDEN CARDIAC DEATH [None]
